FAERS Safety Report 9238581 (Version 1)
Quarter: 2013Q2

REPORT INFORMATION
  Report Type: Report from Study
  Country: BR (occurrence: BR)
  Receive Date: 20130418
  Receipt Date: 20130418
  Transmission Date: 20140414
  Serious: Yes (Hospitalization)
  Sender: FDA-Public Use
  Company Number: BR-BAYER-2013-046008

PATIENT
  Age: 50 Year
  Sex: Male
  Weight: 75 kg

DRUGS (6)
  1. NEXAVAR [Suspect]
     Indication: HEPATIC CANCER
     Dosage: 200 MG, BID
     Route: 048
     Dates: start: 20130325
  2. PURAN T4 [Concomitant]
     Indication: THYROID DISORDER
     Dosage: 1 DF, OM
     Route: 048
     Dates: start: 2004
  3. OMEPRAZOLE [Concomitant]
     Indication: GASTRIC DISORDER
     Dosage: 1 DF, OM
     Route: 048
     Dates: start: 2012
  4. PROPRANOLOL [Concomitant]
     Indication: CARDIAC DISORDER
     Dosage: 0.5 DF, BID
     Route: 048
     Dates: start: 201212
  5. FUROSEMIDE [Concomitant]
     Indication: SWELLING
     Dosage: 1 DF, OM
     Route: 048
     Dates: start: 201301
  6. FUROSEMIDE [Concomitant]
     Indication: FLUID RETENTION

REACTIONS (3)
  - Abdominal distension [Recovering/Resolving]
  - Yellow skin [Recovering/Resolving]
  - Pain [Recovering/Resolving]
